FAERS Safety Report 7421940-5 (Version None)
Quarter: 2011Q2

REPORT INFORMATION
  Report Type: 
  Country: None (occurrence: None)
  Receive Date: 20110418
  Receipt Date: 20110407
  Transmission Date: 20111010
  Serious: Yes (Hospitalization)
  Sender: FDA-Public Use
  Company Number: MX-SANOFI-AVENTIS-2011SA021453

PATIENT
  Age: 82 Year
  Sex: Female

DRUGS (1)
  1. INSULIN GLARGINE [Suspect]
     Route: 058

REACTIONS (1)
  - PULMONARY FIBROSIS [None]
